FAERS Safety Report 18451901 (Version 1)
Quarter: 2020Q4

REPORT INFORMATION
  Report Type: Spontaneous
  Country: US (occurrence: US)
  Receive Date: 20201030
  Receipt Date: 20201030
  Transmission Date: 20210114
  Serious: Yes (Hospitalization)
  Sender: FDA-Public Use
  Company Number: None

PATIENT
  Age: 76 Year
  Sex: Male

DRUGS (1)
  1. RYDAPT [Suspect]
     Active Substance: MIDOSTAURIN
     Route: 048

REACTIONS (7)
  - Dyspnoea [None]
  - Swelling [None]
  - Asthenia [None]
  - Hyperglycaemia [None]
  - Dysuria [None]
  - Testicular swelling [None]
  - Weight increased [None]

NARRATIVE: CASE EVENT DATE: 20201019
